FAERS Safety Report 11260884 (Version 1)
Quarter: 2015Q3

REPORT INFORMATION
  Report Type: Spontaneous
  Country: TN (occurrence: TN)
  Receive Date: 20150710
  Receipt Date: 20150710
  Transmission Date: 20151125
  Serious: Yes (Other)
  Sender: FDA-Public Use
  Company Number: TN-GLAXOSMITHKLINE-TN2015GSK099303

PATIENT
  Age: 7 Year
  Sex: Male

DRUGS (1)
  1. LAMOTRIGINE. [Suspect]
     Active Substance: LAMOTRIGINE
     Indication: PARTIAL SEIZURES

REACTIONS (5)
  - Cell death [Unknown]
  - Pyrexia [Unknown]
  - Eosinophilia [Unknown]
  - Drug reaction with eosinophilia and systemic symptoms [Unknown]
  - Rash generalised [Unknown]
